FAERS Safety Report 24570286 (Version 1)
Quarter: 2024Q4

REPORT INFORMATION
  Report Type: Spontaneous
  Country: US (occurrence: US)
  Receive Date: 20241031
  Receipt Date: 20241031
  Transmission Date: 20250115
  Serious: No
  Sender: MERCK
  Company Number: US-009507513-2410USA007025

PATIENT
  Sex: Female

DRUGS (5)
  1. KEYTRUDA [Suspect]
     Active Substance: PEMBROLIZUMAB
     Indication: Endometrial cancer
     Route: 042
  2. JEMPERLI [Suspect]
     Active Substance: DOSTARLIMAB\DOSTARLIMAB-GXLY
  3. CARBOPLATIN [Suspect]
     Active Substance: CARBOPLATIN
  4. PACLITAXEL [Suspect]
     Active Substance: PACLITAXEL
  5. MEGACE [Suspect]
     Active Substance: MEGESTROL ACETATE

REACTIONS (1)
  - Supportive care [Not Recovered/Not Resolved]
